FAERS Safety Report 21229923 (Version 2)
Quarter: 2024Q3

REPORT INFORMATION
  Report Type: Spontaneous
  Country: US (occurrence: US)
  Receive Date: 20220818
  Receipt Date: 20240913
  Transmission Date: 20241016
  Serious: No
  Sender: SANOFI AVENTIS
  Company Number: US-SA-SAC20220812000058

PATIENT
  Sex: Female
  Weight: 85 kg

DRUGS (6)
  1. KEVZARA [Suspect]
     Active Substance: SARILUMAB
     Indication: Rheumatoid arthritis
     Dosage: 200 MG, QOW
     Route: 058
     Dates: start: 2017
  2. KEVZARA [Suspect]
     Active Substance: SARILUMAB
     Indication: Illness
  3. ASPIRIN [Concomitant]
     Active Substance: ASPIRIN
  4. METHOTREXATE [Concomitant]
     Active Substance: METHOTREXATE
  5. VITAMINS NOS [Concomitant]
     Active Substance: VITAMINS
  6. VITAMIN D3 [Concomitant]
     Active Substance: CHOLECALCIFEROL

REACTIONS (2)
  - Pruritus [Unknown]
  - Pain [Not Recovered/Not Resolved]
